FAERS Safety Report 5786655-8 (Version None)
Quarter: 2008Q2

REPORT INFORMATION
  Report Type: 
  Country: None (occurrence: None)
  Receive Date: 20080618
  Receipt Date: 20080612
  Transmission Date: 20081010
  Serious: Yes (Other)
  Sender: FDA-Public Use
  Company Number: 2008SP009466

PATIENT

DRUGS (1)
  1. NOXAFIL [Suspect]
     Indication: ANTIFUNGAL PROPHYLAXIS
     Dosage: 400 MG;BID;PO
     Route: 048
     Dates: start: 20060127, end: 20060130

REACTIONS (1)
  - ARRHYTHMIA [None]
